FAERS Safety Report 13071565 (Version 4)
Quarter: 2017Q1

REPORT INFORMATION
  Report Type: Spontaneous
  Country: US (occurrence: US)
  Receive Date: 20161229
  Receipt Date: 20170321
  Transmission Date: 20170428
  Serious: Yes (Other)
  Sender: FDA-Public Use
  Company Number: US-PFIZER INC-2016602498

PATIENT
  Age: 72 Year
  Sex: Female

DRUGS (8)
  1. GABAPENTIN. [Concomitant]
     Active Substance: GABAPENTIN
     Indication: NEUROPATHY PERIPHERAL
     Dosage: 400 MG, 4X/DAY
  2. CHANTIX [Suspect]
     Active Substance: VARENICLINE TARTRATE
     Indication: SMOKING CESSATION THERAPY
     Dosage: UNK
     Dates: start: 20161108, end: 20161120
  3. ZOLOFT [Concomitant]
     Active Substance: SERTRALINE HYDROCHLORIDE
     Dosage: 10 MG, UNK
  4. SANDOSTATIN [Concomitant]
     Active Substance: OCTREOTIDE ACETATE
     Indication: CONSTIPATION
     Dosage: 10 MG, MONTHLY
  5. DIAZEPAM. [Concomitant]
     Active Substance: DIAZEPAM
     Indication: ANXIETY
     Dosage: 10 MG, 2X/DAY
  6. DRONABINOL. [Concomitant]
     Active Substance: DRONABINOL
     Indication: NEOPLASM MALIGNANT
     Dosage: 10 MG, 2X/DAY
     Route: 048
  7. CALCIUM [Concomitant]
     Active Substance: CALCIUM
     Dosage: UNK
  8. NORVASC [Concomitant]
     Active Substance: AMLODIPINE BESYLATE
     Indication: RAYNAUD^S PHENOMENON
     Dosage: 10 MG, UNK

REACTIONS (11)
  - Feeling abnormal [Unknown]
  - Constipation [Unknown]
  - Drug prescribing error [Unknown]
  - Asthenia [Unknown]
  - Nightmare [Recovered/Resolved]
  - Mental disorder [Unknown]
  - Nausea [Unknown]
  - Dehydration [Unknown]
  - Fall [Unknown]
  - Head injury [Unknown]
  - Weight decreased [Unknown]

NARRATIVE: CASE EVENT DATE: 2016
